FAERS Safety Report 19746212 (Version 2)
Quarter: 2022Q1

REPORT INFORMATION
  Report Type: Spontaneous
  Country: US (occurrence: None)
  Receive Date: 20210825
  Receipt Date: 20220224
  Transmission Date: 20220423
  Serious: Yes (Other)
  Sender: FDA-Public Use
  Company Number: 2021A687577

PATIENT
  Age: 19656 Day
  Sex: Female
  Weight: 86.2 kg

DRUGS (81)
  1. NEXIUM [Suspect]
     Active Substance: ESOMEPRAZOLE MAGNESIUM
     Indication: Gastrooesophageal reflux disease
     Route: 048
     Dates: start: 1998, end: 2019
  2. NEXIUM [Suspect]
     Active Substance: ESOMEPRAZOLE MAGNESIUM
     Indication: Gastrooesophageal reflux disease
     Route: 048
     Dates: start: 1998, end: 2019
  3. NEXIUM [Suspect]
     Active Substance: ESOMEPRAZOLE MAGNESIUM
     Indication: Gastrooesophageal reflux disease
     Route: 048
     Dates: start: 2001, end: 2019
  4. NEXIUM [Suspect]
     Active Substance: ESOMEPRAZOLE MAGNESIUM
     Indication: Gastrooesophageal reflux disease
     Route: 048
     Dates: start: 2001, end: 2019
  5. NEXIUM 24HR [Suspect]
     Active Substance: ESOMEPRAZOLE MAGNESIUM
     Indication: Gastrooesophageal reflux disease
     Route: 048
     Dates: start: 1998, end: 2019
  6. NEXIUM 24HR [Suspect]
     Active Substance: ESOMEPRAZOLE MAGNESIUM
     Indication: Gastrooesophageal reflux disease
     Route: 048
     Dates: start: 1998, end: 2019
  7. NEXIUM 24HR [Suspect]
     Active Substance: ESOMEPRAZOLE MAGNESIUM
     Indication: Gastrooesophageal reflux disease
     Route: 048
     Dates: start: 2014, end: 2019
  8. NEXIUM 24HR [Suspect]
     Active Substance: ESOMEPRAZOLE MAGNESIUM
     Indication: Gastrooesophageal reflux disease
     Route: 048
     Dates: start: 2014, end: 2019
  9. PRILOSEC [Suspect]
     Active Substance: OMEPRAZOLE MAGNESIUM
     Indication: Gastrooesophageal reflux disease
     Route: 048
     Dates: start: 1998, end: 2019
  10. PRILOSEC [Suspect]
     Active Substance: OMEPRAZOLE MAGNESIUM
     Indication: Gastrooesophageal reflux disease
     Route: 048
     Dates: start: 1998, end: 2019
  11. PRILOSEC [Suspect]
     Active Substance: OMEPRAZOLE MAGNESIUM
     Indication: Gastrooesophageal reflux disease
     Dosage: GENERIC
     Route: 065
     Dates: start: 2011
  12. PRILOSEC [Suspect]
     Active Substance: OMEPRAZOLE MAGNESIUM
     Indication: Gastrooesophageal reflux disease
     Dosage: GENERIC
     Route: 065
     Dates: start: 2011
  13. PRILOSEC OTC [Suspect]
     Active Substance: OMEPRAZOLE MAGNESIUM
     Indication: Gastrooesophageal reflux disease
     Route: 048
     Dates: start: 1998, end: 2019
  14. PRILOSEC OTC [Suspect]
     Active Substance: OMEPRAZOLE MAGNESIUM
     Indication: Gastrooesophageal reflux disease
     Route: 048
     Dates: start: 1998, end: 2019
  15. PRILOSEC OTC [Suspect]
     Active Substance: OMEPRAZOLE MAGNESIUM
     Indication: Gastrooesophageal reflux disease
     Route: 048
     Dates: start: 2003, end: 2019
  16. PRILOSEC OTC [Suspect]
     Active Substance: OMEPRAZOLE MAGNESIUM
     Indication: Gastrooesophageal reflux disease
     Route: 048
     Dates: start: 2003, end: 2019
  17. PREVACID [Suspect]
     Active Substance: LANSOPRAZOLE
     Indication: Gastrooesophageal reflux disease
     Route: 065
     Dates: start: 1998, end: 2019
  18. PREVACID [Suspect]
     Active Substance: LANSOPRAZOLE
     Indication: Gastrooesophageal reflux disease
     Route: 065
     Dates: start: 1998, end: 2019
  19. PREVACID 24 HR [Suspect]
     Active Substance: LANSOPRAZOLE
     Route: 065
  20. TRAMADOL [Concomitant]
     Active Substance: TRAMADOL
  21. ACETAMINOPHEN\HYDROCODONE BITARTRATE [Concomitant]
     Active Substance: ACETAMINOPHEN\HYDROCODONE BITARTRATE
  22. ROPINIROLE [Concomitant]
     Active Substance: ROPINIROLE
  23. AMOXICILLIN\CLAVULANATE POTASSIUM [Concomitant]
     Active Substance: AMOXICILLIN\CLAVULANATE POTASSIUM
  24. GLIPIZIDE [Concomitant]
     Active Substance: GLIPIZIDE
  25. HYDROCHLOROTHIAZIDE [Concomitant]
     Active Substance: HYDROCHLOROTHIAZIDE
  26. METFORMIN [Concomitant]
     Active Substance: METFORMIN HYDROCHLORIDE
  27. DICLOFENAC [Concomitant]
     Active Substance: DICLOFENAC
  28. CEPHALEXIN [Concomitant]
     Active Substance: CEPHALEXIN
  29. LISINOPRIL [Concomitant]
     Active Substance: LISINOPRIL
  30. HUMULIN NOS [Concomitant]
     Active Substance: INSULIN HUMAN
  31. BYDUREON [Concomitant]
     Active Substance: EXENATIDE
  32. CYMBALTA [Concomitant]
     Active Substance: DULOXETINE HYDROCHLORIDE
  33. TIZANIDINE [Concomitant]
     Active Substance: TIZANIDINE
  34. FEXOFENADINE [Concomitant]
     Active Substance: FEXOFENADINE HYDROCHLORIDE
  35. NIASPAN [Concomitant]
     Active Substance: NIACIN
  36. CARISOPRODOL [Concomitant]
     Active Substance: CARISOPRODOL
  37. FENOFIBRATE [Concomitant]
     Active Substance: FENOFIBRATE
  38. MELOXICAM [Concomitant]
     Active Substance: MELOXICAM
  39. AESCULUS HIPPOCASTANUM/JUNIPERUS COMMUNIS/HELLEBORUS PURPURASCENS [Concomitant]
  40. CEFDINIR [Concomitant]
     Active Substance: CEFDINIR
  41. TRIAMCINOLONE [Concomitant]
     Active Substance: TRIAMCINOLONE
  42. TRIMETHOPRIM/SULFAMETHOXYPYRIDAZINE [Concomitant]
  43. SIMVASTATIN [Concomitant]
     Active Substance: SIMVASTATIN
  44. METHOCARBAMOL [Concomitant]
     Active Substance: METHOCARBAMOL
  45. ATOPICLAIR [Concomitant]
  46. PARACETAMOL/BUTALAMINE/CAFFEINE [Concomitant]
  47. DIAZEPAM [Concomitant]
     Active Substance: DIAZEPAM
  48. CYCLOBENZAPRINE [Concomitant]
     Active Substance: CYCLOBENZAPRINE
  49. LOVASTATIN [Concomitant]
     Active Substance: LOVASTATIN
  50. ACTOS [Concomitant]
     Active Substance: PIOGLITAZONE HYDROCHLORIDE
  51. AVANDIA [Concomitant]
     Active Substance: ROSIGLITAZONE MALEATE
  52. ZYRTEC [Concomitant]
     Active Substance: CETIRIZINE HYDROCHLORIDE
  53. CLINDAMYCIN [Concomitant]
     Active Substance: CLINDAMYCIN
  54. FUROSEMIDE [Concomitant]
     Active Substance: FUROSEMIDE
  55. GUAIFENESIN\PHENYLEPHRINE\PHENYLPROPANOLAMINE [Concomitant]
     Active Substance: GUAIFENESIN\PHENYLEPHRINE\PHENYLPROPANOLAMINE
  56. AMOXIL [Concomitant]
     Active Substance: AMOXICILLIN
  57. DOXCYCLINE HYCLATE [Concomitant]
  58. PROMETHAZINE HYDROCHLORIDE [Concomitant]
     Active Substance: PROMETHAZINE HYDROCHLORIDE
  59. AMITRIPTYLINE [Concomitant]
     Active Substance: AMITRIPTYLINE
  60. BENZOCAINE [Concomitant]
     Active Substance: BENZOCAINE
  61. HYDROMORPHONE HYDROCHLORIDE [Concomitant]
     Active Substance: HYDROMORPHONE HYDROCHLORIDE
  62. NEOMYCIN SULFATE [Concomitant]
     Active Substance: NEOMYCIN SULFATE
  63. ERYTHROMYCIN [Concomitant]
     Active Substance: ERYTHROMYCIN
  64. GAVILYTE [Concomitant]
  65. TAMIFLU [Concomitant]
     Active Substance: OSELTAMIVIR PHOSPHATE
  66. POTASSIUM CHLORIDE [Concomitant]
     Active Substance: POTASSIUM CHLORIDE
  67. LYRICA [Concomitant]
     Active Substance: PREGABALIN
  68. VITAMIN D [Concomitant]
     Active Substance: VITAMIN D NOS
  69. JARDIANCE [Concomitant]
     Active Substance: EMPAGLIFLOZIN
  70. TRULICITY [Concomitant]
     Active Substance: DULAGLUTIDE
  71. PAZEO [Concomitant]
     Active Substance: OLOPATADINE HYDROCHLORIDE
  72. HYDROXYZINE HYDROCHLORIDE [Concomitant]
     Active Substance: HYDROXYZINE HYDROCHLORIDE
  73. FLUARIX NOS [Concomitant]
     Active Substance: INFLUENZA VIRUS VACCINE
  74. PSEUDOEPHEDRINE SULFATE/LEVOCETIRIZINE DIHYDROCHLORIDE [Concomitant]
  75. MUPIROCIN [Concomitant]
     Active Substance: MUPIROCIN
  76. VICTOZA [Concomitant]
     Active Substance: LIRAGLUTIDE
  77. SILVER SULFADIAZINE [Concomitant]
     Active Substance: SILVER SULFADIAZINE
  78. BACTROBAN [Concomitant]
     Active Substance: MUPIROCIN\MUPIROCIN CALCIUM
  79. TRIFLURIDINE [Concomitant]
     Active Substance: TRIFLURIDINE
  80. MORPHINE [Concomitant]
     Active Substance: MORPHINE
  81. CODEINE [Concomitant]
     Active Substance: CODEINE

REACTIONS (2)
  - Chronic kidney disease [Not Recovered/Not Resolved]
  - Gastrooesophageal reflux disease [Not Recovered/Not Resolved]

NARRATIVE: CASE EVENT DATE: 20160311
